FAERS Safety Report 18769115 (Version 3)
Quarter: 2021Q3

REPORT INFORMATION
  Report Type: Report from Study
  Country: US (occurrence: US)
  Receive Date: 20210121
  Receipt Date: 20210713
  Transmission Date: 20211014
  Serious: Yes (Other)
  Sender: FDA-Public Use
  Company Number: US-TAKEDA-2021TUS002794

PATIENT
  Sex: Female
  Weight: 72 kg

DRUGS (24)
  1. SODIUM CHLORIDE. [Concomitant]
     Active Substance: SODIUM CHLORIDE
  2. DIPHENHYDRAMINE. [Concomitant]
     Active Substance: DIPHENHYDRAMINE
  3. HUMAN NORMAL IMMUNOGLOBULIN; LIQUID [Suspect]
     Active Substance: HUMAN IMMUNOGLOBULIN G
     Indication: IMMUNODEFICIENCY COMMON VARIABLE
     Dosage: 25 GRAM, Q4WEEKS
     Route: 042
     Dates: start: 20201230
  4. HUMAN NORMAL IMMUNOGLOBULIN; LIQUID [Suspect]
     Active Substance: HUMAN IMMUNOGLOBULIN G
     Indication: OPTIC NEURITIS
  5. EPINEPHRINE. [Concomitant]
     Active Substance: EPINEPHRINE
  6. BACLOFEN. [Concomitant]
     Active Substance: BACLOFEN
  7. GENERLAC [Concomitant]
     Active Substance: LACTULOSE
  8. POTASSIUM [Concomitant]
     Active Substance: POTASSIUM
  9. ACETAMINOPHEN. [Concomitant]
     Active Substance: ACETAMINOPHEN
  10. HEPARIN [Concomitant]
     Active Substance: HEPARIN SODIUM
  11. PROPRANOLOL 3MM [Concomitant]
  12. AMITRIPTYLINE [Concomitant]
     Active Substance: AMITRIPTYLINE
  13. ZOLPIDEM [Concomitant]
     Active Substance: ZOLPIDEM TARTRATE
  14. MIRALAX [Concomitant]
     Active Substance: POLYETHYLENE GLYCOL 3350
  15. BUDESONIDE. [Concomitant]
     Active Substance: BUDESONIDE
  16. LIDOCAINE ACCORD [Concomitant]
  17. OMEPRAZOLE ABBOTT [Concomitant]
     Active Substance: OMEPRAZOLE
  18. PROBIOTIC 10 [Concomitant]
     Active Substance: DIETARY SUPPLEMENT\PROBIOTICS
  19. OXYCODONE [Concomitant]
     Active Substance: OXYCODONE
  20. LEVOTHYROXINE NA [Concomitant]
     Active Substance: LEVOTHYROXINE SODIUM
  21. DARIFENACIN HYDROBROMIDE. [Concomitant]
     Active Substance: DARIFENACIN HYDROBROMIDE
  22. XTAMPZA ER [Concomitant]
     Active Substance: OXYCODONE
  23. DULOXETINE. [Concomitant]
     Active Substance: DULOXETINE
  24. FISH OIL [Concomitant]
     Active Substance: FISH OIL

REACTIONS (4)
  - Headache [Unknown]
  - Paraesthesia [Unknown]
  - Meningitis [Unknown]
  - Chills [Unknown]
